FAERS Safety Report 9356380 (Version 1)
Quarter: 2013Q2

REPORT INFORMATION
  Report Type: Spontaneous
  Country: CN (occurrence: CN)
  Receive Date: 20130619
  Receipt Date: 20130619
  Transmission Date: 20140414
  Serious: Yes (Other)
  Sender: FDA-Public Use
  Company Number: CN-009507513-1306CHN007436

PATIENT
  Age: 87 Year
  Sex: Female

DRUGS (3)
  1. COZAAR [Suspect]
     Indication: HYPERTENSION
     Dosage: 25 MG, QD
     Route: 048
     Dates: start: 20120509, end: 20120509
  2. COZAAR [Suspect]
     Indication: VENTRICULAR REMODELING
  3. PIPERACILLIN SODIUM (+) SULBACTAM SODIUM [Concomitant]
     Indication: ANTI-INFECTIVE THERAPY
     Dosage: UNK
     Dates: start: 20120503, end: 20120509

REACTIONS (2)
  - Throat irritation [Recovered/Resolved]
  - Rash pruritic [Recovered/Resolved]
